FAERS Safety Report 6330367-9 (Version None)
Quarter: 2009Q3

REPORT INFORMATION
  Report Type: 
  Country: None (occurrence: None)
  Receive Date: 20090827
  Receipt Date: 20071001
  Transmission Date: 20100115
  Serious: Yes (Hospitalization, Other)
  Sender: FDA-Public Use
  Company Number: US-ASTRAZENECA-2007UW18732

PATIENT
  Age: 71 Year
  Sex: Female
  Weight: 94.8 kg

DRUGS (20)
  1. SEROQUEL [Suspect]
     Indication: DEPRESSION
     Dosage: 25 MG - 200 MG
     Route: 048
     Dates: start: 20020101, end: 20060101
  2. SEROQUEL [Suspect]
     Indication: NERVOUSNESS
     Dosage: 25 MG - 200 MG
     Route: 048
     Dates: start: 20020101, end: 20060101
  3. SEROQUEL [Suspect]
     Indication: AGITATION
     Dosage: 25 MG - 200 MG
     Route: 048
     Dates: start: 20020101, end: 20060101
  4. SEROQUEL [Suspect]
     Dosage: 200-600 MG
     Route: 048
     Dates: start: 20050216, end: 20050707
  5. SEROQUEL [Suspect]
     Dosage: 200-600 MG
     Route: 048
     Dates: start: 20050216, end: 20050707
  6. SEROQUEL [Suspect]
     Dosage: 200-600 MG
     Route: 048
     Dates: start: 20050216, end: 20050707
  7. SEROQUEL [Suspect]
     Dosage: 25-600 MG
     Route: 048
     Dates: start: 20050715
  8. SEROQUEL [Suspect]
     Dosage: 25-600 MG
     Route: 048
     Dates: start: 20050715
  9. SEROQUEL [Suspect]
     Dosage: 25-600 MG
     Route: 048
     Dates: start: 20050715
  10. ZYPREXA [Concomitant]
     Dosage: 2.5 MG - 5 MG
     Route: 048
  11. GEODON [Concomitant]
     Route: 048
     Dates: start: 20020101
  12. ZITIA [Concomitant]
     Route: 048
  13. VYTORIN [Concomitant]
     Route: 048
  14. NEXIUM [Concomitant]
     Route: 048
     Dates: start: 20050518
  15. EVISTA [Concomitant]
     Route: 048
     Dates: start: 20050605
  16. LOTREL [Concomitant]
     Dosage: 10-20 MG
     Route: 048
     Dates: start: 19960213
  17. PRAVACHOL [Concomitant]
     Route: 048
     Dates: start: 20050605
  18. TOPROL-XL [Concomitant]
     Dosage: 50-200 MG
     Route: 048
     Dates: start: 20050121
  19. AVALIDE [Concomitant]
     Dosage: 12.5-300 MG
     Route: 048
     Dates: start: 20050131
  20. NOVOLOG [Concomitant]
     Dosage: 08-20 UNITS
     Route: 058
     Dates: start: 20050211

REACTIONS (8)
  - DIABETES MELLITUS [None]
  - DIABETIC NEUROPATHY [None]
  - NEUROPATHY PERIPHERAL [None]
  - POLYNEUROPATHY [None]
  - RENAL DISORDER [None]
  - RENAL FAILURE ACUTE [None]
  - RENAL FAILURE CHRONIC [None]
  - TYPE 1 DIABETES MELLITUS [None]
